FAERS Safety Report 16877148 (Version 1)
Quarter: 2019Q4

REPORT INFORMATION
  Report Type: Spontaneous
  Country: US (occurrence: US)
  Receive Date: 20191002
  Receipt Date: 20191002
  Transmission Date: 20200122
  Serious: No
  Sender: FDA-Public Use
  Company Number: None

PATIENT
  Sex: Female

DRUGS (2)
  1. ESTRADIOL TRANSDERMAL SYSTEM [Suspect]
     Active Substance: ESTRADIOL
  2. PREMARIN [Suspect]
     Active Substance: ESTROGENS, CONJUGATED

REACTIONS (2)
  - Migraine [None]
  - Dermatitis contact [None]
